FAERS Safety Report 8471862-6 (Version None)
Quarter: 2012Q2

REPORT INFORMATION
  Report Type: 
  Country: None (occurrence: None)
  Receive Date: 20120627
  Receipt Date: 20120619
  Transmission Date: 20120825
  Serious: Yes (Other)
  Sender: FDA-Public Use
  Company Number: US-BAYER-2012-061981

PATIENT
  Age: 52 Year
  Sex: Female
  Weight: 61 kg

DRUGS (4)
  1. IMITREX [Concomitant]
     Indication: MIGRAINE
     Dosage: 100 MG, UNK
     Route: 048
     Dates: start: 20040729, end: 20080221
  2. YAZ [Suspect]
  3. YASMIN [Suspect]
  4. DROSPIRENONE AND ETHINYL ESTRADIOL [Suspect]
     Indication: MIGRAINE PROPHYLAXIS

REACTIONS (1)
  - DEEP VEIN THROMBOSIS [None]
